FAERS Safety Report 7556016-X (Version None)
Quarter: 2011Q2

REPORT INFORMATION
  Report Type: 
  Country: None (occurrence: None)
  Receive Date: 20110620
  Receipt Date: 20110610
  Transmission Date: 20111010
  Serious: Yes (Hospitalization)
  Sender: FDA-Public Use
  Company Number: US-BIOGENIDEC-2011BI020348

PATIENT
  Age: 55 Year
  Sex: Female

DRUGS (3)
  1. DANTRIUM [Concomitant]
     Indication: MUSCLE SPASMS
     Route: 048
     Dates: start: 20090801
  2. TYSABRI [Suspect]
     Indication: MULTIPLE SCLEROSIS
     Route: 042
     Dates: start: 20090605
  3. CYMBALTA [Concomitant]
     Indication: DEPRESSION
     Route: 048
     Dates: start: 20090401

REACTIONS (2)
  - URINARY TRACT INFECTION [None]
  - COLITIS [None]
